FAERS Safety Report 23185955 (Version 1)
Quarter: 2023Q4

REPORT INFORMATION
  Report Type: Spontaneous
  Country: DE (occurrence: DE)
  Receive Date: 20231115
  Receipt Date: 20231115
  Transmission Date: 20240110
  Serious: Yes (Other)
  Sender: FDA-Public Use
  Company Number: DE-ALNYLAM PHARMACEUTICALS, INC.-ALN-2023-005491

PATIENT
  Sex: Male

DRUGS (4)
  1. VALPROIC ACID [Suspect]
     Active Substance: VALPROIC ACID
     Indication: Product used for unknown indication
     Dosage: UNK
     Route: 065
  2. OXLUMO [Suspect]
     Active Substance: LUMASIRAN
     Indication: Primary hyperoxaluria
     Dosage: 3 MILLIGRAM/KILOGRAM, MONTHLY (THE FIRST 4 DOSES)
     Route: 065
  3. OXLUMO [Suspect]
     Active Substance: LUMASIRAN
     Dosage: 3 MILLIGRAM/KILOGRAM, Q3M
     Route: 065
  4. VITAMIN B6 [Concomitant]
     Active Substance: PYRIDOXINE HYDROCHLORIDE
     Indication: Product used for unknown indication
     Dosage: 10 MILLIGRAM/KILOGRAM, QD
     Route: 065

REACTIONS (4)
  - Nephrocalcinosis [Unknown]
  - Seizure [Unknown]
  - Nephrectomy [Unknown]
  - Blood parathyroid hormone increased [Unknown]
